FAERS Safety Report 8756248 (Version 1)
Quarter: 2012Q4

REPORT INFORMATION
  Report Type: 
  Country: US (occurrence: US)
  Receive Date: 20120828
  Receipt Date: 20120828
  Transmission Date: 20130627
  Serious: Yes (Other)
  Sender: FDA-Public Use
  Company Number: PHEH2012US016562

PATIENT
  Sex: Female

DRUGS (3)
  1. LOPRESSOR [Suspect]
     Dosage: 50 mg, UNK
  2. LOPRESSOR [Suspect]
     Dosage: 0.5 DF (25 mg), UNK
  3. LANTUS [Concomitant]

REACTIONS (6)
  - Cerebrovascular accident [Unknown]
  - Blood pressure inadequately controlled [Unknown]
  - Malaise [Unknown]
  - Wrong technique in drug usage process [Unknown]
  - Rash [Unknown]
  - Drug ineffective [None]
